FAERS Safety Report 23860672 (Version 2)
Quarter: 2024Q2

REPORT INFORMATION
  Report Type: Spontaneous
  Country: JP (occurrence: JP)
  Receive Date: 20240516
  Receipt Date: 20240524
  Transmission Date: 20240716
  Serious: Yes (Other)
  Sender: FDA-Public Use
  Company Number: JP-aspen-SDZ2023JP072335AA

PATIENT
  Age: 39 Year
  Sex: Male

DRUGS (3)
  1. XYLOCAINE [Suspect]
     Active Substance: LIDOCAINE HYDROCHLORIDE\LIDOCAINE HYDROCHLORIDE ANHYDROUS
     Indication: Product used for unknown indication
     Dosage: UNK
     Route: 065
     Dates: start: 20231223
  2. ORGADRONE [Concomitant]
     Active Substance: DEXAMETHASONE SODIUM PHOSPHATE
     Indication: Product used for unknown indication
     Dosage: UNK
     Route: 065
     Dates: start: 20231223
  3. PREDONINE [Concomitant]
     Active Substance: PREDNISOLONE
     Indication: Product used for unknown indication
     Dosage: UNK
     Route: 065
     Dates: start: 20231223

REACTIONS (5)
  - Anaphylactic reaction [Recovered/Resolved]
  - Laryngeal oedema [Recovering/Resolving]
  - Alopecia [Recovered/Resolved]
  - Dyspnoea [Recovering/Resolving]
  - Erythema [Recovered/Resolved]

NARRATIVE: CASE EVENT DATE: 20240415
